FAERS Safety Report 5491569-7 (Version None)
Quarter: 2007Q4

REPORT INFORMATION
  Report Type: 
  Country: None (occurrence: None)
  Receive Date: 20071018
  Receipt Date: 20071018
  Transmission Date: 20080405
  Serious: Yes (Life-Threatening)
  Sender: FDA-Public Use
  Company Number: None

PATIENT
  Age: 51 Year
  Sex: Male
  Weight: 81 kg

DRUGS (15)
  1. INSULIN ASPART [Suspect]
     Indication: TYPE 1 DIABETES MELLITUS
     Dosage: SSI-MED
     Dates: start: 20070911, end: 20070912
  2. LANTUS [Suspect]
     Dosage: 6 UNITS SQ QHS
     Route: 058
     Dates: start: 20070911, end: 20070912
  3. ASPIRIN [Concomitant]
  4. DOCUSATE [Concomitant]
  5. EPO [Concomitant]
  6. LANSOPRAZOLE [Concomitant]
  7. LISINOPRIL [Concomitant]
  8. METOPROLOL [Concomitant]
  9. NIFEDIPINE [Concomitant]
  10. PARICALCITOL [Concomitant]
  11. PHENYTOIN [Concomitant]
  12. VALSARTAN [Concomitant]
  13. HEP SQ [Concomitant]
  14. FLUTICASONE PROPIONATE [Concomitant]
  15. PNEUMOCOCCAL VACCINE [Concomitant]

REACTIONS (3)
  - BLOOD GLUCOSE DECREASED [None]
  - HYPERHIDROSIS [None]
  - SOMNOLENCE [None]
